FAERS Safety Report 6496041-3 (Version None)
Quarter: 2009Q4

REPORT INFORMATION
  Report Type: 
  Country: None (occurrence: None)
  Receive Date: 20091214
  Receipt Date: 20090918
  Transmission Date: 20100525
  Serious: No
  Sender: FDA-Public Use
  Company Number: US-BRISTOL-MYERS SQUIBB COMPANY-14785745

PATIENT
  Age: 22 Year
  Sex: Male

DRUGS (3)
  1. ABILIFY [Suspect]
     Indication: DEPRESSION
     Dosage: TAKEN 5MG INITIALLY THEN 10MG
  2. CELEXA [Suspect]
  3. DEPAKOTE [Concomitant]

REACTIONS (1)
  - HEPATIC ENZYME INCREASED [None]
